FAERS Safety Report 7741789-3 (Version None)
Quarter: 2011Q3

REPORT INFORMATION
  Report Type: 
  Country: None (occurrence: None)
  Receive Date: 20110912
  Receipt Date: 20110902
  Transmission Date: 20111222
  Serious: No
  Sender: FDA-Public Use
  Company Number: US-BIOGENIDEC-2011BI033763

PATIENT
  Sex: Female

DRUGS (2)
  1. AVONEX [Suspect]
     Indication: MULTIPLE SCLEROSIS
     Route: 030
     Dates: start: 20030101, end: 20040701
  2. TYLENOL-500 [Concomitant]
     Indication: PREMEDICATION
     Dates: start: 20030101

REACTIONS (3)
  - UNDERDOSE [None]
  - INJECTION SITE REACTION [None]
  - INJECTION SITE PAIN [None]
